FAERS Safety Report 16958750 (Version 4)
Quarter: 2020Q3

REPORT INFORMATION
  Report Type: Report from Study
  Country: US (occurrence: US)
  Receive Date: 20191024
  Receipt Date: 20200724
  Transmission Date: 20201102
  Serious: Yes (Hospitalization, Other)
  Sender: FDA-Public Use
  Company Number: US-ACTELION-A-US2019-197283

PATIENT
  Age: 60 Year
  Sex: Female
  Weight: 71.66 kg

DRUGS (2)
  1. TADALAFIL. [Concomitant]
     Active Substance: TADALAFIL
  2. OPSUMIT [Suspect]
     Active Substance: MACITENTAN
     Indication: PULMONARY HYPERTENSION
     Dosage: 10 MG, QD
     Route: 048

REACTIONS (19)
  - Aspiration pleural cavity [Unknown]
  - Pain [Unknown]
  - Pruritus [Unknown]
  - Headache [Unknown]
  - White blood cell count decreased [Unknown]
  - Urinary tract infection [Unknown]
  - Pleural effusion [Unknown]
  - Paracentesis [Unknown]
  - Muscle spasms [Unknown]
  - Fluid retention [Unknown]
  - Chronic hepatic failure [Unknown]
  - Pulmonary oedema [Unknown]
  - Blood pressure decreased [Not Recovered/Not Resolved]
  - Pyrexia [Unknown]
  - Non-cardiac chest pain [Unknown]
  - Oxygen saturation decreased [Unknown]
  - Dyspnoea [Unknown]
  - Dysuria [Unknown]
  - Nasal congestion [Unknown]

NARRATIVE: CASE EVENT DATE: 201910
